FAERS Safety Report 17673874 (Version 1)
Quarter: 2020Q2

REPORT INFORMATION
  Report Type: Spontaneous
  Country: CO (occurrence: CO)
  Receive Date: 20200415
  Receipt Date: 20200415
  Transmission Date: 20200714
  Serious: Yes (Other)
  Sender: FDA-Public Use
  Company Number: CO-BIOMARINAP-CO-2020-129677

PATIENT
  Age: 5 Year
  Sex: Female

DRUGS (1)
  1. VIMIZIM [Suspect]
     Active Substance: ELOSULFASE ALFA
     Indication: MUCOPOLYSACCHARIDOSIS IV
     Route: 042

REACTIONS (4)
  - Hypoacusis [Unknown]
  - Bone disorder [Unknown]
  - Hernia [Unknown]
  - Visual impairment [Unknown]
